FAERS Safety Report 5589825-7 (Version None)
Quarter: 2008Q1

REPORT INFORMATION
  Report Type: 
  Country: None (occurrence: None)
  Receive Date: 20080110
  Receipt Date: 20080110
  Transmission Date: 20080703
  Serious: No
  Sender: FDA-Public Use
  Company Number: None

PATIENT
  Sex: Male
  Weight: 87.0906 kg

DRUGS (2)
  1. CIPRO [Suspect]
     Indication: URINARY TRACT INFECTION
     Dosage: TWICE DAILY  PO
     Route: 048
     Dates: start: 20070708, end: 20070723
  2. CIPRO [Suspect]
     Indication: URINARY TRACT OPERATION
     Dosage: TWICE DAILY  PO
     Route: 048
     Dates: start: 20070708, end: 20070723

REACTIONS (1)
  - TENDON RUPTURE [None]
